FAERS Safety Report 5763704-4 (Version None)
Quarter: 2008Q2

REPORT INFORMATION
  Report Type: 
  Country: None (occurrence: None)
  Receive Date: 20080610
  Receipt Date: 20080602
  Transmission Date: 20081010
  Serious: Yes (Hospitalization, Other)
  Sender: FDA-Public Use
  Company Number: US-ASTRAZENECA-2008UW11119

PATIENT
  Age: 78 Year
  Sex: Male
  Weight: 89.4 kg

DRUGS (3)
  1. CRESTOR [Suspect]
     Route: 048
  2. BENECOR [Concomitant]
  3. TOPROL-XL [Concomitant]
     Route: 048

REACTIONS (1)
  - PNEUMONIA [None]
